FAERS Safety Report 5648074-4 (Version None)
Quarter: 2008Q1

REPORT INFORMATION
  Report Type: 
  Country: None (occurrence: None)
  Receive Date: 20080229
  Receipt Date: 20080229
  Transmission Date: 20080703
  Serious: Yes (Hospitalization)
  Sender: FDA-Public Use
  Company Number: None

PATIENT
  Age: 60 Year
  Sex: Male
  Weight: 75.7 kg

DRUGS (2)
  1. FUROSEMIDE [Suspect]
     Indication: HYPERTENSION
     Dosage: 20MG EVERY DAY PO
     Route: 048
     Dates: start: 20050301
  2. SPIRONOLACTONE [Suspect]
     Indication: HYPERTENSION
     Dosage: 50MG EVERY DAY PO
     Route: 048
     Dates: start: 20050401

REACTIONS (2)
  - HYPERKALAEMIA [None]
  - RENAL FAILURE ACUTE [None]
